FAERS Safety Report 14577057 (Version 1)
Quarter: 2018Q1

REPORT INFORMATION
  Report Type: Spontaneous
  Country: US (occurrence: US)
  Receive Date: 20180225
  Receipt Date: 20180225
  Transmission Date: 20180509
  Serious: Yes (Life-Threatening, Other)
  Sender: FDA-Public Use
  Company Number: None

PATIENT
  Age: 9 Year
  Sex: Female
  Weight: 22.95 kg

DRUGS (6)
  1. SERTRALINE [Concomitant]
     Active Substance: SERTRALINE HYDROCHLORIDE
  2. MONTELUKAST [Suspect]
     Active Substance: MONTELUKAST SODIUM
     Indication: ASTHMA
     Dosage: ?          QUANTITY:1 TABLET(S);?
     Route: 048
     Dates: start: 20130801, end: 20160119
  3. PULMOZYME [Concomitant]
     Active Substance: DORNASE ALFA
  4. DULER INHALER [Concomitant]
  5. PULSATING VEST AIRWAY CLEARANCE SYSTEM [Concomitant]
  6. DYE-FREE TYLENOL [Concomitant]

REACTIONS (9)
  - Obsessive-compulsive disorder [None]
  - Exophthalmos [None]
  - Nervous system disorder [None]
  - Scratch [None]
  - Abnormal behaviour [None]
  - Anxiety [None]
  - Mental disorder [None]
  - Anger [None]
  - Excessive eye blinking [None]

NARRATIVE: CASE EVENT DATE: 20161020
